FAERS Safety Report 6681318-9 (Version None)
Quarter: 2010Q2

REPORT INFORMATION
  Report Type: 
  Country: None (occurrence: None)
  Receive Date: 20100414
  Receipt Date: 20100409
  Transmission Date: 20101027
  Serious: Yes (Hospitalization, Congenital Anomaly)
  Sender: FDA-Public Use
  Company Number: A0681068A

PATIENT
  Sex: Male

DRUGS (2)
  1. PAXIL CR [Suspect]
     Indication: DEPRESSION
     Dosage: 25MG PER DAY
     Dates: start: 20021201, end: 20040601
  2. PROMETHAZINE [Concomitant]
     Indication: NAUSEA

REACTIONS (4)
  - DRUG EXPOSURE DURING PREGNANCY [None]
  - LUNG DISORDER [None]
  - RESPIRATORY SYNCYTIAL VIRUS INFECTION [None]
  - TACHYPNOEA [None]
